FAERS Safety Report 19035858 (Version 1)
Quarter: 2021Q1

REPORT INFORMATION
  Report Type: Spontaneous
  Country: CA (occurrence: CA)
  Receive Date: 20210321
  Receipt Date: 20210321
  Transmission Date: 20210420
  Serious: Yes (Hospitalization)
  Sender: FDA-Public Use
  Company Number: CA-TEVA-2021-CA-1890893

PATIENT
  Age: 69 Year
  Sex: Female
  Weight: 69 kg

DRUGS (16)
  1. TRANDATE [Concomitant]
     Active Substance: LABETALOL HYDROCHLORIDE
     Route: 065
  2. PROCHLORAZINE [Concomitant]
     Route: 065
  3. LAX?A?DAY [Concomitant]
     Active Substance: POLYETHYLENE GLYCOL 3350
     Route: 065
  4. CARBOPLATIN INJECTION BP [Suspect]
     Active Substance: CARBOPLATIN
     Indication: SMALL CELL LUNG CANCER
     Route: 041
  5. FUROSEMIDE. [Concomitant]
     Active Substance: FUROSEMIDE
     Route: 065
  6. PREGABALIN. [Concomitant]
     Active Substance: PREGABALIN
     Route: 065
  7. RESTORIL [Concomitant]
     Active Substance: TEMAZEPAM
     Route: 065
  8. EZETIMIBE. [Concomitant]
     Active Substance: EZETIMIBE
     Route: 065
  9. TYLENOL [Concomitant]
     Active Substance: ACETAMINOPHEN
     Route: 065
  10. ETOPOSIDE INJECTION [Suspect]
     Active Substance: ETOPOSIDE
     Route: 042
  11. AMLODIPINE [Concomitant]
     Active Substance: AMLODIPINE BESYLATE
     Route: 065
  12. ASA [Concomitant]
     Active Substance: ASPIRIN
     Route: 065
  13. CYCLOBENZAPRINE. [Concomitant]
     Active Substance: CYCLOBENZAPRINE
     Route: 065
  14. PANTOPRAZOLE [Concomitant]
     Active Substance: PANTOPRAZOLE
     Route: 065
  15. VENTOLIN [Concomitant]
     Active Substance: ALBUTEROL SULFATE
     Route: 065
  16. DILAUDID [Concomitant]
     Active Substance: HYDROMORPHONE HYDROCHLORIDE
     Route: 065

REACTIONS (2)
  - Febrile neutropenia [Recovered/Resolved]
  - Chills [Recovered/Resolved]
